FAERS Safety Report 8808847 (Version 1)
Quarter: 2012Q4

REPORT INFORMATION
  Report Type: Spontaneous
  Country: US (occurrence: None)
  Receive Date: 20120920
  Receipt Date: 20120920
  Transmission Date: 20130627
  Serious: Yes (Death, Life-Threatening, Hospitalization, Disabling)
  Sender: FDA-Public Use
  Company Number: FK201202701

PATIENT
  Age: 66 Year
  Sex: Female
  Weight: 61 kg

DRUGS (5)
  1. CARBOPLATIN [Suspect]
     Indication: OVARIAN CANCER
     Dosage: 570 mg, 1 in 3 Weeks, Intravenous (not otherwise specified)
     Route: 042
     Dates: start: 20110118, end: 20110322
  2. MORAB-003 [Suspect]
     Dosage: 1 in 1 week, Intravenous (not otherwise specified)
     Route: 042
  3. DOCETAXEL [Suspect]
     Dosage: 75 mg/m2, 1 in 3 weeks,
     Dates: start: 20110118, end: 20110322
  4. PACLITAXEL [Concomitant]
  5. CALCIUM LACTATE [Concomitant]

REACTIONS (10)
  - Chest X-ray abnormal [None]
  - Multi-organ failure [None]
  - Leukopenia [None]
  - Thrombocytopenia [None]
  - Neutropenia [None]
  - Blood creatinine increased [None]
  - Hyponatraemia [None]
  - Tachycardia [None]
  - Hypotension [None]
  - Respiratory failure [None]
